FAERS Safety Report 7044119-8 (Version None)
Quarter: 2010Q4

REPORT INFORMATION
  Report Type: 
  Country: None (occurrence: None)
  Receive Date: 20101013
  Receipt Date: 20101001
  Transmission Date: 20110411
  Serious: Yes (Disabling)
  Sender: FDA-Public Use
  Company Number: US-PFIZER INC-2010112414

PATIENT
  Sex: Female
  Weight: 95.69 kg

DRUGS (5)
  1. LYRICA [Suspect]
     Indication: COMPLEX REGIONAL PAIN SYNDROME
     Dosage: UNK
     Route: 048
     Dates: start: 20060801
  2. REQUIP [Concomitant]
     Indication: RESTLESS LEGS SYNDROME
     Dosage: 5 MG, DAILY
  3. CYMBALTA [Concomitant]
     Indication: COMPLEX REGIONAL PAIN SYNDROME
     Dosage: 60 MG, DAILY
  4. HYDROCODONE [Concomitant]
     Dosage: 10 MG, 2X/DAY
  5. TOPAMAX [Concomitant]
     Indication: PAIN
     Dosage: 100 MG, DAILY

REACTIONS (11)
  - ANXIETY [None]
  - BACK DISORDER [None]
  - BALANCE DISORDER [None]
  - BURNING SENSATION [None]
  - COMPLEX REGIONAL PAIN SYNDROME [None]
  - DIARRHOEA [None]
  - HEADACHE [None]
  - INSOMNIA [None]
  - PRURITUS [None]
  - RASH [None]
  - SKIN IRRITATION [None]
